FAERS Safety Report 6284224-7 (Version None)
Quarter: 2009Q3

REPORT INFORMATION
  Report Type: 
  Country: None (occurrence: None)
  Receive Date: 20090722
  Receipt Date: 20090708
  Transmission Date: 20100115
  Serious: Yes (Hospitalization)
  Sender: FDA-Public Use
  Company Number: DSM-2009-00743

PATIENT
  Age: 72 Year
  Sex: Female

DRUGS (4)
  1. OLPREZIDE (HYDROCHLOROTHIAZIDE, OLMESARTAN MEDOXOMIL) (TABLET) (HYDROC [Suspect]
     Indication: HYPERTENSION
     Dosage: 20 MG /12.5 MG, ORAL
     Route: 048
     Dates: start: 20090106, end: 20090506
  2. PANTORC (PANTOPRAZOLE SODIUM) (PANTOPRAZOLE SODIUM) [Concomitant]
  3. SUGUAN M (METFORMIN HYDROCHLORIDE, GLIBENCLAMIDE) (METFORMIN HYDROCHLO [Concomitant]
  4. CARDIOASPIRIN (ACETYLSALICYLIC ACID) (ACETYLSALICYLIC ACID) [Concomitant]

REACTIONS (2)
  - INTERSTITIAL LUNG DISEASE [None]
  - RESPIRATORY FAILURE [None]
